FAERS Safety Report 16528816 (Version 1)
Quarter: 2019Q3

REPORT INFORMATION
  Report Type: Spontaneous
  Country: GR (occurrence: GR)
  Receive Date: 20190703
  Receipt Date: 20190703
  Transmission Date: 20191004
  Serious: Yes (Other)
  Sender: FDA-Public Use
  Company Number: GR-JNJFOC-20190633696

PATIENT
  Age: 51 Year
  Sex: Male

DRUGS (3)
  1. CYMEVENE [Concomitant]
     Active Substance: GANCICLOVIR
     Indication: PNEUMONIA CYTOMEGALOVIRAL
  2. BACTRIMEL [Concomitant]
     Active Substance: SULFAMETHOXAZOLE\TRIMETHOPRIM
     Indication: PNEUMONIA CYTOMEGALOVIRAL
  3. SYMTUZA [Suspect]
     Active Substance: COBICISTAT\DARUNAVIR\EMTRICITABINE\TENOFOVIR ALAFENAMIDE
     Indication: HIV INFECTION
     Route: 065

REACTIONS (2)
  - Progressive multifocal leukoencephalopathy [Not Recovered/Not Resolved]
  - Immune reconstitution inflammatory syndrome [Not Recovered/Not Resolved]
